FAERS Safety Report 8478451-8 (Version None)
Quarter: 2012Q2

REPORT INFORMATION
  Report Type: 
  Country: None (occurrence: None)
  Receive Date: 20120629
  Receipt Date: 20120620
  Transmission Date: 20120825
  Serious: Yes (Hospitalization)
  Sender: FDA-Public Use
  Company Number: GB-ABBOTT-12P-167-0948614-00

PATIENT
  Sex: Female

DRUGS (3)
  1. NORMOSANG [Suspect]
     Indication: PORPHYRIA ACUTE
     Dosage: 250 MG DAILY
     Route: 065
     Dates: start: 19960301, end: 19960301
  2. DEXTROSE [Concomitant]
     Indication: PRODUCT USED FOR UNKNOWN INDICATION
     Dosage: (PREV.)
  3. VALPROATE SODIUM [Suspect]
     Indication: EPILEPSY
     Route: 065
     Dates: start: 19950301

REACTIONS (2)
  - THROMBOCYTOPENIA [None]
  - INJECTION SITE THROMBOSIS [None]
